FAERS Safety Report 4979411-1 (Version None)
Quarter: 2006Q2

REPORT INFORMATION
  Report Type: 
  Country: None (occurrence: None)
  Receive Date: 20060421
  Receipt Date: 20060104
  Transmission Date: 20061013
  Serious: Yes (Death, Other)
  Sender: FDA-Public Use
  Company Number: US-MERCK-0601USA00536

PATIENT
  Sex: Male

DRUGS (1)
  1. VIOXX [Suspect]
     Indication: BACK PAIN
     Route: 048

REACTIONS (3)
  - CARDIAC DISORDER [None]
  - DEATH [None]
  - MYOCARDIAL INFARCTION [None]
